FAERS Safety Report 12366432 (Version 9)
Quarter: 2016Q3

REPORT INFORMATION
  Report Type: Report from Study
  Country: DK (occurrence: DK)
  Receive Date: 20160513
  Receipt Date: 20160707
  Transmission Date: 20161109
  Serious: Yes (Hospitalization)
  Sender: FDA-Public Use
  Company Number: DK-ROCHE-1755407

PATIENT
  Age: 70 Year
  Sex: Male
  Weight: 66.3 kg

DRUGS (54)
  1. ACETYLSALICYLSYRE [Concomitant]
     Active Substance: ASPIRIN
     Indication: MYOCARDIAL INFARCTION
     Route: 048
  2. NATRIUMCHLORID [Concomitant]
     Indication: HYPONATRAEMIA
     Route: 042
     Dates: start: 20160408, end: 20160408
  3. KALIUMCHLORID [Concomitant]
     Indication: HYPOKALAEMIA
     Route: 048
     Dates: start: 20160410, end: 20160410
  4. ERYTHROCYTE TRANSFUSIONS [Concomitant]
     Indication: HAEMOGLOBIN DECREASED
     Dosage: DOSE:1 UNIT
     Route: 042
     Dates: start: 20160410, end: 20160410
  5. ERYTHROCYTE TRANSFUSIONS [Concomitant]
     Dosage: DOSE:1 UNIT
     Route: 042
     Dates: start: 20160412, end: 20160412
  6. NATRIUMCHLORID [Concomitant]
     Dosage: 1 OTHER
     Route: 048
     Dates: start: 20160524
  7. PARACETAMOL [Concomitant]
     Active Substance: ACETAMINOPHEN
     Route: 048
     Dates: start: 20160428, end: 20160428
  8. PARACETAMOL [Concomitant]
     Active Substance: ACETAMINOPHEN
     Route: 048
     Dates: start: 20160415, end: 20160415
  9. CLEMASTIN [Concomitant]
     Active Substance: CLEMASTINE
     Route: 048
     Dates: start: 20160415, end: 20160415
  10. METHYLPREDNISOLON [Concomitant]
     Active Substance: METHYLPREDNISOLONE
     Route: 042
     Dates: start: 20160415, end: 20160415
  11. METHYLPREDNISOLON [Concomitant]
     Active Substance: METHYLPREDNISOLONE
     Route: 042
     Dates: start: 20160511, end: 20160511
  12. PETHIDIN [Concomitant]
     Active Substance: MEPERIDINE
     Indication: INFUSION RELATED REACTION
     Route: 042
     Dates: start: 20160414, end: 20160414
  13. NATRIUMCHLORID [Concomitant]
     Route: 042
     Dates: start: 20160504, end: 20160504
  14. PARACETAMOL [Concomitant]
     Active Substance: ACETAMINOPHEN
     Route: 048
     Dates: start: 20160511, end: 20160511
  15. CLEMASTIN [Concomitant]
     Active Substance: CLEMASTINE
     Route: 048
     Dates: start: 20160421, end: 20160421
  16. CLEMASTIN [Concomitant]
     Active Substance: CLEMASTINE
     Route: 048
     Dates: start: 20160511, end: 20160511
  17. MICONAZOL [Concomitant]
     Active Substance: MICONAZOLE NITRATE
     Indication: ANAL FUNGAL INFECTION
     Route: 065
     Dates: start: 20160504, end: 20160518
  18. OMEGA 3 [Concomitant]
     Active Substance: OMEGA-3 FATTY ACIDS
     Indication: VITAMIN SUPPLEMENTATION
     Route: 048
     Dates: start: 20160317
  19. ERYTHROCYTE TRANSFUSIONS [Concomitant]
     Route: 042
     Dates: start: 20160513, end: 20160513
  20. MACROGOL 3350 [Concomitant]
     Active Substance: POLYETHYLENE GLYCOL 3350
     Indication: CONSTIPATION
     Route: 048
     Dates: start: 20160524
  21. GDC-0199 (BCL-2 SELECTIVE INHIBITOR) [Suspect]
     Active Substance: VENETOCLAX
     Indication: CHRONIC LYMPHOCYTIC LEUKAEMIA
     Dosage: MOST RECENT DOSE TAKEN ON 04/MAY/2016 11:30 HOURS PRIOR TO FIRST EPISODE OF INFECTION UNKNOWN FOCUS
     Route: 048
     Dates: start: 20160504
  22. IBUPROFEN. [Concomitant]
     Active Substance: IBUPROFEN
     Indication: PAIN IN EXTREMITY
     Route: 048
  23. ALLOPURINOL. [Concomitant]
     Active Substance: ALLOPURINOL
     Route: 048
     Dates: start: 20160404, end: 20160409
  24. KALIUMCHLORID [Concomitant]
     Dosage: 1 OTHER
     Route: 048
     Dates: start: 20160524
  25. PARACETAMOL [Concomitant]
     Active Substance: ACETAMINOPHEN
     Route: 048
     Dates: start: 20160421, end: 20160421
  26. METHYLPREDNISOLON [Concomitant]
     Active Substance: METHYLPREDNISOLONE
     Indication: PROPHYLAXIS
     Route: 042
     Dates: start: 20160414, end: 20160414
  27. METHYLPREDNISOLON [Concomitant]
     Active Substance: METHYLPREDNISOLONE
     Route: 042
     Dates: start: 20160421, end: 20160421
  28. NATRIUMHYDROGENCARBONAT [Concomitant]
     Active Substance: SODIUM BICARBONATE
     Indication: CONSTIPATION
     Dosage: 1 OTHER
     Route: 048
     Dates: start: 20160524
  29. SULFAMETHOXAZOLE/TRIMETHOPRIM [Concomitant]
     Active Substance: SULFAMETHOXAZOLE\TRIMETHOPRIM
     Route: 048
     Dates: start: 20160529
  30. OBINUTUZUMAB [Suspect]
     Active Substance: OBINUTUZUMAB
     Indication: CHRONIC LYMPHOCYTIC LEUKAEMIA
     Dosage: MOST RECENT DOSE AT 1000 MG WAS TAKEN ON ON 28/APR/2016 AT 12:00 HOURS PRIOR TO FIRST EPISODE OF INF
     Route: 042
     Dates: start: 20160414
  31. ALLOPURINOL. [Concomitant]
     Active Substance: ALLOPURINOL
     Route: 048
     Dates: start: 20160413
  32. ESCITALOPRAM [Concomitant]
     Active Substance: ESCITALOPRAM OXALATE
     Indication: DEPRESSION
     Route: 048
     Dates: start: 20160330, end: 20160503
  33. NATRIUMCHLORID [Concomitant]
     Route: 042
     Dates: start: 20160414, end: 20160414
  34. FUROSEMID [Concomitant]
     Active Substance: FUROSEMIDE
     Route: 042
     Dates: start: 20160416, end: 20160418
  35. PARACETAMOL [Concomitant]
     Active Substance: ACETAMINOPHEN
     Indication: PROPHYLAXIS
     Route: 048
     Dates: start: 20160414, end: 20160414
  36. ERYTHROCYTE TRANSFUSIONS [Concomitant]
     Route: 042
     Dates: start: 20160418, end: 20160418
  37. DIPYRIDAMOL [Concomitant]
     Indication: CEREBROVASCULAR ACCIDENT
     Route: 048
  38. AMLODIPIN [Concomitant]
     Active Substance: AMLODIPINE BESYLATE
     Indication: HYPERTENSION
     Route: 048
     Dates: start: 20160408
  39. ESCITALOPRAM [Concomitant]
     Active Substance: ESCITALOPRAM OXALATE
     Route: 048
     Dates: start: 20160504
  40. NATRIUMCHLORID [Concomitant]
     Route: 042
     Dates: start: 20160409, end: 20160409
  41. NATRIUMCHLORID [Concomitant]
     Route: 048
     Dates: start: 20160415, end: 20160415
  42. METHYLPREDNISOLON [Concomitant]
     Active Substance: METHYLPREDNISOLONE
     Route: 042
     Dates: start: 20160428, end: 20160428
  43. NYSTATIN. [Concomitant]
     Active Substance: NYSTATIN
     Indication: ORAL FUNGAL INFECTION
     Route: 048
     Dates: start: 20160504
  44. ERYTHROCYTE TRANSFUSIONS [Concomitant]
     Route: 042
     Dates: start: 20160414, end: 20160414
  45. NATRIUMCHLORID [Concomitant]
     Route: 042
     Dates: start: 20160413, end: 20160413
  46. FUROSEMID [Concomitant]
     Active Substance: FUROSEMIDE
     Route: 042
     Dates: start: 20160424, end: 20160428
  47. CLEMASTIN [Concomitant]
     Active Substance: CLEMASTINE
     Indication: PROPHYLAXIS
     Route: 048
     Dates: start: 20160414, end: 20160414
  48. CLEMASTIN [Concomitant]
     Active Substance: CLEMASTINE
     Route: 048
     Dates: start: 20160428, end: 20160428
  49. NATRIUMHYDROGENCARBONAT [Concomitant]
     Active Substance: SODIUM BICARBONATE
     Dosage: 1 OTHER
     Route: 048
     Dates: start: 20160524
  50. ROSUVASTATIN. [Concomitant]
     Active Substance: ROSUVASTATIN
     Indication: HYPERCHOLESTEROLAEMIA
     Route: 048
     Dates: start: 20160409
  51. TRANDOLAPRIL. [Concomitant]
     Active Substance: TRANDOLAPRIL
     Indication: HYPERTENSION
     Route: 048
     Dates: start: 20160408
  52. FUROSEMID [Concomitant]
     Active Substance: FUROSEMIDE
     Indication: OEDEMA PERIPHERAL
     Route: 042
     Dates: start: 20160408, end: 20160414
  53. FUROSEMID [Concomitant]
     Active Substance: FUROSEMIDE
     Route: 042
     Dates: start: 20160421, end: 20160423
  54. BENDROFLUMETHIAZIDE/KALIUM CHLORID [Concomitant]
     Indication: OEDEMA PERIPHERAL
     Route: 048
     Dates: start: 20160421

REACTIONS (3)
  - Infection [Recovered/Resolved]
  - Epstein-Barr virus infection [Not Recovered/Not Resolved]
  - Infection [Not Recovered/Not Resolved]

NARRATIVE: CASE EVENT DATE: 20160505
